FAERS Safety Report 9360757 (Version 2)
Quarter: 2013Q2

REPORT INFORMATION
  Report Type: Report from Study
  Country: CA (occurrence: CA)
  Receive Date: 20130621
  Receipt Date: 20130628
  Transmission Date: 20140414
  Serious: Yes (Other)
  Sender: FDA-Public Use
  Company Number: CA-JNJFOC-20130610803

PATIENT
  Sex: Female

DRUGS (6)
  1. REMICADE [Suspect]
     Indication: RHEUMATOID ARTHRITIS
     Route: 042
     Dates: start: 20070327
  2. REMICADE [Suspect]
     Indication: RHEUMATOID ARTHRITIS
     Route: 042
     Dates: start: 20130507
  3. CELEBREX [Concomitant]
     Route: 065
  4. METHOTREXATE [Concomitant]
     Route: 065
  5. FOLIC ACID [Concomitant]
     Route: 065
  6. PREVACID [Concomitant]
     Route: 065

REACTIONS (2)
  - Nephrolithiasis [Unknown]
  - Cystitis [Unknown]
